FAERS Safety Report 7997088-8 (Version None)
Quarter: 2011Q4

REPORT INFORMATION
  Report Type: 
  Country: None (occurrence: None)
  Receive Date: 20111212
  Receipt Date: 20111122
  Transmission Date: 20120403
  Serious: Yes (Other)
  Sender: FDA-Public Use
  Company Number: OMX-2011-00024

PATIENT
  Sex: Male

DRUGS (1)
  1. EVICEL [Suspect]
     Indication: HAEMOSTASIS
     Dosage: EPILESIONAL
     Dates: start: 20110721, end: 20110721

REACTIONS (2)
  - POST PROCEDURAL HAEMORRHAGE [None]
  - DRUG INEFFECTIVE [None]
